FAERS Safety Report 6690112-4 (Version None)
Quarter: 2010Q2

REPORT INFORMATION
  Report Type: 
  Country: None (occurrence: None)
  Receive Date: 20100421
  Receipt Date: 20100415
  Transmission Date: 20101027
  Serious: Yes (Death, Other)
  Sender: FDA-Public Use
  Company Number: PHHY2010BE23873

PATIENT
  Age: 58 Year
  Sex: Female

DRUGS (3)
  1. ZOMETA [Suspect]
     Indication: METASTASES TO BONE
  2. IFOSFAMIDE [Concomitant]
  3. ADRIAMYCIN PFS [Concomitant]

REACTIONS (6)
  - DYSPNOEA EXERTIONAL [None]
  - INTRACARDIAC THROMBUS [None]
  - METASTASES TO HEART [None]
  - SYSTEMIC INFLAMMATORY RESPONSE SYNDROME [None]
  - TUMOUR EXCISION [None]
  - WEIGHT DECREASED [None]
